FAERS Safety Report 19839440 (Version 2)
Quarter: 2021Q3

REPORT INFORMATION
  Report Type: Spontaneous
  Country: JP (occurrence: JP)
  Receive Date: 20210915
  Receipt Date: 20210928
  Transmission Date: 20211014
  Serious: Yes (Death, Hospitalization)
  Sender: FDA-Public Use
  Company Number: JP-BAYER-2021-211685

PATIENT
  Age: 88 Year
  Sex: Male
  Weight: 42 kg

DRUGS (1)
  1. NUBEQA [Suspect]
     Active Substance: DAROLUTAMIDE
     Indication: PROSTATE CANCER
     Dosage: 1200MG DAILY
     Route: 048
     Dates: start: 20210609, end: 20210830

REACTIONS (3)
  - Hormone-refractory prostate cancer [Fatal]
  - Heat illness [None]
  - Pneumonia aspiration [None]

NARRATIVE: CASE EVENT DATE: 20210825
